FAERS Safety Report 7234738-8 (Version None)
Quarter: 2011Q1

REPORT INFORMATION
  Report Type: 
  Country: None (occurrence: None)
  Receive Date: 20110120
  Receipt Date: 20110118
  Transmission Date: 20110831
  Serious: No
  Sender: FDA-Public Use
  Company Number: US-BIOGENIDEC-2011BI001935

PATIENT
  Sex: Male

DRUGS (4)
  1. PHENERGAN [Concomitant]
     Indication: VERTIGO
     Dates: start: 20050101
  2. AVONEX [Suspect]
     Indication: MULTIPLE SCLEROSIS
     Route: 030
     Dates: start: 20070921, end: 20100101
  3. AVONEX [Suspect]
     Route: 030
     Dates: start: 20100201
  4. MECLIZINE [Concomitant]
     Indication: VERTIGO
     Dates: start: 20050101

REACTIONS (3)
  - INFLUENZA LIKE ILLNESS [None]
  - VERTIGO [None]
  - HEMIPARESIS [None]
